FAERS Safety Report 10758812 (Version 1)
Quarter: 2015Q1

REPORT INFORMATION
  Report Type: Spontaneous
  Country: ES (occurrence: None)
  Receive Date: 20150202
  Receipt Date: 20150202
  Transmission Date: 20150721
  Serious: Yes (Disabling)
  Sender: FDA-Public Use
  Company Number: None

PATIENT
  Age: 39 Year
  Sex: Female
  Weight: 53 kg

DRUGS (1)
  1. 99MTC_HMDP [Suspect]
     Active Substance: TECHNETIUM TC-99M OXIDRONATE

REACTIONS (5)
  - Injury [None]
  - Arthralgia [None]
  - Pruritus [None]
  - Rash [None]
  - Pain in extremity [None]

NARRATIVE: CASE EVENT DATE: 20140912
